FAERS Safety Report 6765636-1 (Version None)
Quarter: 2010Q2

REPORT INFORMATION
  Report Type: 
  Country: None (occurrence: None)
  Receive Date: 20100611
  Receipt Date: 20100601
  Transmission Date: 20101027
  Serious: Yes (Other)
  Sender: FDA-Public Use
  Company Number: US-PFIZER INC-2010069498

PATIENT
  Sex: Female

DRUGS (3)
  1. NEURONTIN [Suspect]
     Indication: LABOUR PAIN
     Dosage: UNK, TWO TIMES A DAY
     Dates: start: 20100101
  2. NEURONTIN [Suspect]
     Indication: ANXIETY
  3. NEURONTIN [Suspect]
     Indication: MOOD ALTERED

REACTIONS (2)
  - BRAIN INJURY [None]
  - MEMORY IMPAIRMENT [None]
